FAERS Safety Report 13954188 (Version 1)
Quarter: 2017Q3

REPORT INFORMATION
  Report Type: Spontaneous
  Country: US (occurrence: None)
  Receive Date: 20170910
  Receipt Date: 20170910
  Transmission Date: 20171128
  Serious: No
  Sender: FDA-Public Use
  Company Number: None

PATIENT
  Sex: Female

DRUGS (1)
  1. METHOTREXATE MDV 25MG/ML NA [Suspect]
     Active Substance: METHOTREXATE
     Indication: ARTHROPATHY
     Route: 058
     Dates: start: 20161010

REACTIONS (1)
  - Liver function test increased [None]
